FAERS Safety Report 17468644 (Version 4)
Quarter: 2020Q1

REPORT INFORMATION
  Report Type: Spontaneous
  Country: BR (occurrence: BR)
  Receive Date: 20200227
  Receipt Date: 20200320
  Transmission Date: 20200409
  Serious: Yes (Hospitalization, Other)
  Sender: FDA-Public Use
  Company Number: BR-SA-2018SA251437

PATIENT
  Age: 30 Year
  Sex: Male
  Weight: 75 kg

DRUGS (9)
  1. ROHYPNOL [Concomitant]
     Active Substance: FLUNITRAZEPAM
     Indication: SLEEP DISORDER
     Dosage: 1 DF, HS
     Route: 048
  2. MIDAZOLAM. [Concomitant]
     Active Substance: MIDAZOLAM
     Indication: INSOMNIA
     Dosage: 3 OR 4 TIMES PER WEEK
     Route: 048
     Dates: start: 201805
  3. STILNOX [Suspect]
     Active Substance: ZOLPIDEM TARTRATE
     Dosage: UNK (1 TABLET SOMETIMES 2 TABLET)
     Route: 048
  4. STILNOX CR [Suspect]
     Active Substance: ZOLPIDEM TARTRATE
     Dosage: UNK
     Route: 065
  5. STILNOX [Suspect]
     Active Substance: ZOLPIDEM TARTRATE
     Indication: INSOMNIA
     Dosage: 2 DF, QD
     Route: 048
     Dates: start: 2016
  6. STILNOX [Suspect]
     Active Substance: ZOLPIDEM TARTRATE
     Indication: SLEEP DISORDER
     Dosage: 1 DF, HS
     Route: 048
     Dates: start: 20180922, end: 20180926
  7. STILNOX [Suspect]
     Active Substance: ZOLPIDEM TARTRATE
     Dosage: 30 MG, QD
     Route: 048
  8. DIAZEPAM. [Concomitant]
     Active Substance: DIAZEPAM
  9. STILNOX [Suspect]
     Active Substance: ZOLPIDEM TARTRATE
     Dosage: 4 DF
     Dates: start: 20181113

REACTIONS (6)
  - Pneumonia [Recovered/Resolved]
  - Feeling abnormal [Unknown]
  - Drug ineffective [Unknown]
  - Extra dose administered [Unknown]
  - Product storage error [Unknown]
  - Insomnia [Unknown]

NARRATIVE: CASE EVENT DATE: 20181113
